FAERS Safety Report 19641395 (Version 2)
Quarter: 2021Q4

REPORT INFORMATION
  Report Type: Spontaneous
  Country: US (occurrence: US)
  Receive Date: 20210730
  Receipt Date: 20211006
  Transmission Date: 20220303
  Serious: Yes (Hospitalization, Other)
  Sender: FDA-Public Use
  Company Number: US-JNJFOC-20210751491

PATIENT
  Age: 79 Year
  Sex: Male
  Weight: 81.27 kg

DRUGS (7)
  1. XARELTO [Suspect]
     Active Substance: RIVAROXABAN
     Indication: Atrial fibrillation
     Route: 048
     Dates: start: 202102, end: 20210721
  2. XARELTO [Suspect]
     Active Substance: RIVAROXABAN
     Indication: Cerebrovascular accident prophylaxis
  3. METOPROLOL [Concomitant]
     Active Substance: METOPROLOL
     Indication: Blood pressure measurement
  4. AMLODIPINE\VALSARTAN [Concomitant]
     Active Substance: AMLODIPINE\VALSARTAN
     Indication: Blood pressure measurement
     Dosage: 10-160 MG
  5. ZOLPIDERM [Concomitant]
     Indication: Sleep disorder therapy
  6. HYDROCHLOROTHIAZIDE [Concomitant]
     Active Substance: HYDROCHLOROTHIAZIDE
  7. COVID-19 VACCINE [Concomitant]
     Dates: start: 202103

REACTIONS (3)
  - Post procedural haemorrhage [Recovered/Resolved]
  - Dental care [Unknown]
  - Weight decreased [Unknown]

NARRATIVE: CASE EVENT DATE: 20210708
